FAERS Safety Report 7761853-2 (Version None)
Quarter: 2011Q3

REPORT INFORMATION
  Report Type: 
  Country: None (occurrence: None)
  Receive Date: 20110915
  Receipt Date: 20090407
  Transmission Date: 20111222
  Serious: Yes (Hospitalization, Other)
  Sender: FDA-Public Use
  Company Number: CZ-000149

PATIENT
  Sex: Female

DRUGS (3)
  1. CETROTIDE [Concomitant]
  2. ACIDUM FOLICUM [Concomitant]
  3. MENOPUR [Suspect]
     Indication: ASSISTED FERTILISATION
     Dosage: 150 IU, SUBCUTANEOUS
     Route: 058
     Dates: start: 20090115, end: 20090126

REACTIONS (4)
  - ASCITES [None]
  - PREGNANCY [None]
  - OVARIAN HYPERSTIMULATION SYNDROME [None]
  - ABORTION SPONTANEOUS [None]
